FAERS Safety Report 4957742-9 (Version None)
Quarter: 2006Q1

REPORT INFORMATION
  Report Type: 
  Country: None (occurrence: None)
  Receive Date: 20060324
  Receipt Date: 20060315
  Transmission Date: 20060701
  Serious: Yes (Other)
  Sender: FDA-Public Use
  Company Number: 2006037199

PATIENT
  Age: 53 Year
  Sex: Female
  Weight: 83.9154 kg

DRUGS (13)
  1. GENOTROPIN [Suspect]
     Indication: ASTHENIA
     Dosage: 0.8 MG (0.8 MG, DAIL)
     Dates: start: 20000101
  2. AVANDAMET (METFORMIN HYDROCHLORIDE, ROSIGLITAZONE) [Concomitant]
  3. GLUCOPHAGE [Concomitant]
  4. CELEBREX [Concomitant]
  5. LEVOTHROID [Concomitant]
  6. DARVOCET (DEXTROPROPOXPHENE NAPSILATE, PARACETAMOL) [Concomitant]
  7. ROBAXIN [Concomitant]
  8. ATIVAN [Concomitant]
  9. IMIPRAMINE [Concomitant]
  10. CYMBALTA [Concomitant]
  11. HCT ^ISIS^ (HYDROCHLOROTHIAZIDE) [Concomitant]
  12. TOPROL-XL [Concomitant]
  13. VITAMINS (VITAMINS) [Concomitant]

REACTIONS (3)
  - BURSITIS [None]
  - MEMORY IMPAIRMENT [None]
  - TENDONITIS [None]
